FAERS Safety Report 6787797-0 (Version None)
Quarter: 2010Q2

REPORT INFORMATION
  Report Type: 
  Country: None (occurrence: None)
  Receive Date: 20100623
  Receipt Date: 20070905
  Transmission Date: 20101027
  Serious: Yes (Other)
  Sender: FDA-Public Use
  Company Number: US-PFIZER INC-2007060985

PATIENT
  Sex: Female
  Weight: 57 kg

DRUGS (7)
  1. DEPO-SUBQ PROVERA 104 [Suspect]
     Indication: CONTRACEPTION
     Route: 058
     Dates: start: 20051228, end: 20051228
  2. DEPO-SUBQ PROVERA 104 [Suspect]
     Route: 058
     Dates: start: 20060501, end: 20060501
  3. DEPO-SUBQ PROVERA 104 [Suspect]
     Route: 058
     Dates: start: 20060724, end: 20060724
  4. DEPO-SUBQ PROVERA 104 [Suspect]
     Route: 058
     Dates: start: 20061024, end: 20061024
  5. DEPO-SUBQ PROVERA 104 [Suspect]
     Route: 058
     Dates: start: 20070117, end: 20070117
  6. DEPO-SUBQ PROVERA 104 [Suspect]
     Route: 058
     Dates: start: 20070419, end: 20070419
  7. DEPO-SUBQ PROVERA 104 [Suspect]
     Dosage: MOST RECENT INJECTION
     Route: 058
     Dates: start: 20070713, end: 20070713

REACTIONS (1)
  - INJECTION SITE REACTION [None]
